FAERS Safety Report 4897426-9 (Version None)
Quarter: 2006Q1

REPORT INFORMATION
  Report Type: 
  Country: None (occurrence: None)
  Receive Date: 20060130
  Receipt Date: 20060130
  Transmission Date: 20060701
  Serious: Yes (Hospitalization, Disabling)
  Sender: FDA-Public Use
  Company Number: None

PATIENT
  Age: 68 Year
  Sex: Female
  Weight: 67.586 kg

DRUGS (6)
  1. LEVAQUIN [Suspect]
     Indication: DIVERTICULITIS
     Dosage: 500  DAILY  PO
     Route: 048
     Dates: start: 20041228, end: 20050103
  2. FOSAMAX [Concomitant]
  3. CALCIUM SUPPLIMENT [Concomitant]
  4. ELAVIL [Concomitant]
  5. FLAGYL [Concomitant]
  6. DARVOCET [Concomitant]

REACTIONS (1)
  - HEPATITIS [None]
